FAERS Safety Report 23696819 (Version 1)
Quarter: 2024Q2

REPORT INFORMATION
  Report Type: Spontaneous
  Country: FR (occurrence: FR)
  Receive Date: 20240402
  Receipt Date: 20240402
  Transmission Date: 20240716
  Serious: Yes (Death, Congenital Anomaly)
  Sender: FDA-Public Use
  Company Number: None

PATIENT
  Sex: Female
  Weight: 1.038 kg

DRUGS (25)
  1. ATRACURIUM BESYLATE [Suspect]
     Active Substance: ATRACURIUM BESYLATE
     Indication: General anaesthesia
     Dosage: 45 MG
     Route: 064
     Dates: start: 20230425, end: 20230425
  2. CLONIDINE [Suspect]
     Active Substance: CLONIDINE
     Indication: General anaesthesia
     Dosage: 75 UG
     Route: 064
     Dates: start: 20230425, end: 20230425
  3. OXYCODONE [Suspect]
     Active Substance: OXYCODONE\OXYCODONE HYDROCHLORIDE
     Indication: General anaesthesia
     Dosage: 4 MG
     Route: 064
     Dates: start: 20230425, end: 20230425
  4. SUFENTANIL [Suspect]
     Active Substance: SUFENTANIL
     Indication: General anaesthesia
     Dosage: 15 UG
     Route: 064
     Dates: start: 20230425, end: 20230425
  5. SUCCINYLCHOLINE CHLORIDE [Suspect]
     Active Substance: SUCCINYLCHOLINE CHLORIDE
     Indication: General anaesthesia
     Dosage: 60 MG
     Route: 064
     Dates: start: 20230425, end: 20230425
  6. PROPOFOL [Suspect]
     Active Substance: PROPOFOL
     Indication: General anaesthesia
     Dosage: 150 MG
     Route: 064
     Dates: start: 20230425, end: 20230425
  7. AUGMENTIN [Suspect]
     Active Substance: AMOXICILLIN\CLAVULANATE POTASSIUM
     Indication: General anaesthesia
     Dosage: 2 G
     Route: 064
     Dates: start: 20230425, end: 20230425
  8. LIDOCAINE HYDROCHLORIDE [Suspect]
     Active Substance: LIDOCAINE HYDROCHLORIDE
     Indication: General anaesthesia
     Dosage: 60 MG
     Route: 064
     Dates: start: 20230425, end: 20230425
  9. ATROPINE SULFATE [Suspect]
     Active Substance: ATROPINE SULFATE
     Indication: General anaesthesia
     Dosage: 1 MG
     Route: 064
     Dates: start: 20230425, end: 20230425
  10. MAGNESIUM SULFATE [Suspect]
     Active Substance: MAGNESIUM SULFATE\MAGNESIUM SULFATE HEPTAHYDRATE
     Indication: General anaesthesia
     Dosage: 3 G
     Route: 064
     Dates: start: 20230425, end: 20230425
  11. VISIPAQUE [Suspect]
     Active Substance: IODIXANOL
     Indication: General anaesthesia
     Dosage: 60 ML
     Route: 064
     Dates: start: 20230425, end: 20230425
  12. NEFOPAM HYDROCHLORIDE [Suspect]
     Active Substance: NEFOPAM HYDROCHLORIDE
     Indication: General anaesthesia
     Dosage: 20 MG
     Route: 064
     Dates: start: 20230425, end: 20230425
  13. ACETAMINOPHEN [Suspect]
     Active Substance: ACETAMINOPHEN
     Indication: General anaesthesia
     Dosage: 1 G
     Route: 064
     Dates: start: 20230425, end: 20230425
  14. MIDAZOLAM [Suspect]
     Active Substance: MIDAZOLAM
     Indication: General anaesthesia
     Dosage: 1 MG
     Route: 064
     Dates: start: 20230425, end: 20230425
  15. KETAMINE [Suspect]
     Active Substance: KETAMINE
     Indication: General anaesthesia
     Dosage: 70 MG
     Route: 064
     Dates: start: 20230425, end: 20230425
  16. NOREPINEPHRINE [Suspect]
     Active Substance: NOREPINEPHRINE\NOREPINEPHRINE BITARTRATE
     Indication: General anaesthesia
     Dosage: 463 UG
     Route: 064
     Dates: start: 20230425, end: 20230425
  17. NEOSTIGMINE METHYLSULFATE [Suspect]
     Active Substance: NEOSTIGMINE METHYLSULFATE
     Indication: General anaesthesia
     Dosage: 2.5 MG
     Route: 064
     Dates: start: 20230425, end: 20230425
  18. PHLOROGLUCINOL [Concomitant]
     Active Substance: PHLOROGLUCINOL
     Dosage: UNK
     Route: 064
  19. ENOXAPARIN SODIUM [Concomitant]
     Active Substance: ENOXAPARIN SODIUM
     Dosage: UNK
     Route: 064
  20. LEVOTHYROXINE [Concomitant]
     Active Substance: LEVOTHYROXINE\LEVOTHYROXINE SODIUM
     Dosage: UNK
     Route: 064
  21. INNOHEP [Concomitant]
     Active Substance: TINZAPARIN SODIUM
     Dosage: UNK
     Route: 064
  22. FERINJECT [Concomitant]
     Active Substance: FERRIC CARBOXYMALTOSE
     Dosage: UNK
     Route: 064
  23. LANSOPRAZOLE [Concomitant]
     Active Substance: LANSOPRAZOLE
     Dosage: UNK
     Route: 064
  24. NOVORAPID [Concomitant]
     Active Substance: INSULIN ASPART
     Dosage: UNK
     Route: 064
  25. TRIMEBUTINE [Concomitant]
     Active Substance: TRIMEBUTINE
     Dosage: UNK
     Route: 064

REACTIONS (3)
  - Maternal exposure during pregnancy [Fatal]
  - Schizencephaly [Fatal]
  - Cerebral haemorrhage foetal [Fatal]

NARRATIVE: CASE EVENT DATE: 20230425
